FAERS Safety Report 21832038 (Version 1)
Quarter: 2023Q1

REPORT INFORMATION
  Report Type: Spontaneous
  Country: US (occurrence: US)
  Receive Date: 20230106
  Receipt Date: 20230106
  Transmission Date: 20230418
  Serious: No
  Sender: FDA-Public Use
  Company Number: US-BAYER-2022A170903

PATIENT
  Age: 75 Year
  Sex: Male

DRUGS (2)
  1. ALEVE [Suspect]
     Active Substance: NAPROXEN SODIUM
     Indication: Pain
     Dosage: 2-3 TABLETS A DAY
     Route: 048
     Dates: start: 202210, end: 20221219
  2. ALEVE [Suspect]
     Active Substance: NAPROXEN SODIUM
     Indication: Skin papilloma

REACTIONS (1)
  - Drug effective for unapproved indication [None]
